FAERS Safety Report 25874791 (Version 1)
Quarter: 2025Q4

REPORT INFORMATION
  Report Type: Spontaneous
  Country: EU (occurrence: EU)
  Receive Date: 20251002
  Receipt Date: 20251002
  Transmission Date: 20260117
  Serious: Yes (Death, Hospitalization, Other)
  Sender: ELI LILLY AND COMPANY
  Company Number: EU-ELI_LILLY_AND_COMPANY-NL202509028957

PATIENT
  Age: 65 Year
  Sex: Male

DRUGS (1)
  1. SELPERCATINIB [Suspect]
     Active Substance: SELPERCATINIB
     Indication: Product used for unknown indication
     Dosage: 160 MG, BID
     Route: 048
     Dates: start: 20221117, end: 20250910

REACTIONS (2)
  - Peripheral arterial occlusive disease [Fatal]
  - Embolism arterial [Not Recovered/Not Resolved]
